FAERS Safety Report 9740947 (Version 1)
Quarter: 2013Q4

REPORT INFORMATION
  Report Type: Spontaneous
  Country: US (occurrence: US)
  Receive Date: 20131209
  Receipt Date: 20131209
  Transmission Date: 20140711
  Serious: No
  Sender: FDA-Public Use
  Company Number: US-BIOGENIDEC-2013BI100594

PATIENT
  Age: 49 Year
  Sex: Female
  Weight: 61 kg

DRUGS (8)
  1. TECFIDERA [Suspect]
     Indication: PRODUCT USED FOR UNKNOWN INDICATION
     Route: 048
  2. TECFIDERA [Suspect]
     Indication: PRODUCT USED FOR UNKNOWN INDICATION
     Route: 048
  3. DESMOPRESSIN [Concomitant]
  4. SOLU-MEDROL [Concomitant]
     Indication: MULTIPLE SCLEROSIS RELAPSE
  5. OXYBUTYNIN [Concomitant]
  6. BACLOFEN [Concomitant]
  7. LISINOPRIL [Concomitant]
  8. VITAMIN E [Concomitant]

REACTIONS (6)
  - Muscle spasms [Unknown]
  - Hypoaesthesia oral [Unknown]
  - Musculoskeletal stiffness [Unknown]
  - Local swelling [Unknown]
  - Feeling hot [Unknown]
  - Multiple sclerosis relapse [Unknown]
